FAERS Safety Report 23461125 (Version 1)
Quarter: 2024Q1

REPORT INFORMATION
  Report Type: Spontaneous
  Country: GB (occurrence: GB)
  Receive Date: 20240131
  Receipt Date: 20240131
  Transmission Date: 20240410
  Serious: Yes (Other)
  Sender: FDA-Public Use
  Company Number: GB-PFIZER INC-PV202400012085

PATIENT
  Age: 13 Year
  Sex: Male

DRUGS (1)
  1. GENOTROPIN [Suspect]
     Active Substance: SOMATROPIN
     Indication: Growth hormone deficiency
     Dosage: 0.5 MG
     Route: 058
     Dates: start: 20240112

REACTIONS (4)
  - Vomiting [Recovering/Resolving]
  - Viral infection [Recovering/Resolving]
  - Arthralgia [Unknown]
  - Groin pain [Unknown]
